FAERS Safety Report 5099456-3 (Version None)
Quarter: 2006Q3

REPORT INFORMATION
  Report Type: 
  Country: None (occurrence: None)
  Receive Date: 20060908
  Receipt Date: 20060831
  Transmission Date: 20061208
  Serious: Yes (Death, Hospitalization)
  Sender: FDA-Public Use
  Company Number: US-JNJFOC-20060900260

PATIENT
  Sex: Male

DRUGS (7)
  1. REMICADE [Suspect]
     Indication: RHEUMATOID ARTHRITIS
     Route: 042
  2. PREDNISONE TAB [Concomitant]
  3. SPIRONOLACTONE [Concomitant]
  4. LASIX [Concomitant]
  5. ALLEGRA [Concomitant]
  6. MULTI-VITAMIN [Concomitant]
  7. CALCIUM + D [Concomitant]

REACTIONS (6)
  - CHILLS [None]
  - DEATH [None]
  - DYSPNOEA [None]
  - RENAL DISORDER [None]
  - TACHYCARDIA [None]
  - TREMOR [None]
